FAERS Safety Report 8242933-4 (Version None)
Quarter: 2012Q1

REPORT INFORMATION
  Report Type: 
  Country: None (occurrence: None)
  Receive Date: 20120329
  Receipt Date: 20120329
  Transmission Date: 20120608
  Serious: Yes (Hospitalization)
  Sender: FDA-Public Use
  Company Number: None

PATIENT
  Sex: Female
  Weight: 66.224 kg

DRUGS (6)
  1. KINERET [Concomitant]
  2. RITUXAN [Concomitant]
     Indication: RHEUMATOID ARTHRITIS
     Dosage: 1000MG
     Route: 041
  3. ARAVA [Concomitant]
  4. METHOTREXATE [Concomitant]
  5. TOCILIZUMAB [Concomitant]
  6. ENBREL [Suspect]
     Indication: RHEUMATOID ARTHRITIS
     Dosage: 25 MG
     Route: 058
     Dates: start: 20000701, end: 20020201

REACTIONS (1)
  - VULVAR DYSPLASIA [None]
